FAERS Safety Report 10195403 (Version 2)
Quarter: 2014Q2

REPORT INFORMATION
  Report Type: Spontaneous
  Country: US (occurrence: US)
  Receive Date: 20140526
  Receipt Date: 20140609
  Transmission Date: 20141212
  Serious: No
  Sender: FDA-Public Use
  Company Number: US-009507513-1405USA012183

PATIENT
  Age: 66 Year
  Sex: Female
  Weight: 68.27 kg

DRUGS (5)
  1. OXYTROL FOR WOMEN [Suspect]
     Indication: HYPERTONIC BLADDER
     Dosage: UNKNOWN
     Route: 062
  2. SIMVASTATIN [Concomitant]
     Indication: BLOOD CHOLESTEROL INCREASED
     Dosage: UNK, UNKNOWN
  3. GLUCOSAMINE [Concomitant]
     Indication: OSTEOARTHRITIS
     Dosage: UNK, UNKNOWN
  4. CELEBREX [Concomitant]
     Indication: OSTEOARTHRITIS
     Dosage: UNK, UNKNOWN
  5. CALCIUM (UNSPECIFIED) (+) VITAMIN D (UNSPECIFIED) [Concomitant]
     Indication: OSTEOARTHRITIS
     Dosage: UNK, UNKNOWN

REACTIONS (2)
  - Application site erythema [Recovering/Resolving]
  - Exposure during pregnancy [Unknown]
